FAERS Safety Report 12885847 (Version 1)
Quarter: 2016Q4

REPORT INFORMATION
  Report Type: Spontaneous
  Country: US (occurrence: US)
  Receive Date: 20161025
  Receipt Date: 20161025
  Transmission Date: 20170207
  Serious: Yes (Life-Threatening, Hospitalization)
  Sender: FDA-Public Use
  Company Number: None

PATIENT
  Age: 39 Year
  Sex: Female
  Weight: 54 kg

DRUGS (5)
  1. (ZOLPIDEM [Suspect]
     Active Substance: ZOLPIDEM\ZOLPIDEM TARTRATE
     Indication: INSOMNIA
     Dosage: ?          QUANTITY:1 TABLET(S);?
     Route: 048
     Dates: start: 20150212, end: 20150213
  2. ZYPREXA [Concomitant]
     Active Substance: OLANZAPINE
  3. LITHIUM. [Concomitant]
     Active Substance: LITHIUM
  4. VITAMIN C [Concomitant]
     Active Substance: ASCORBIC ACID
  5. VITAMIN B COMPLEX [Concomitant]
     Active Substance: CYANOCOBALAMIN\DEXPANTHENOL\NIACINAMIDE\PYRIDOXINE HYDROCHLORIDE\RIBOFLAVIN 5^-PHOSPHATE SODIUM\THIAMINE HYDROCHLORIDE\VITAMIN B COMPLEX

REACTIONS (8)
  - Abnormal behaviour [None]
  - Frostbite [None]
  - Suicidal ideation [None]
  - Blister [None]
  - Pain in extremity [None]
  - Malaise [None]
  - Loss of consciousness [None]
  - Hallucination, visual [None]

NARRATIVE: CASE EVENT DATE: 20150212
